FAERS Safety Report 9006050 (Version 2)
Quarter: 2013Q1

REPORT INFORMATION
  Report Type: Spontaneous
  Country: BR (occurrence: BR)
  Receive Date: 20130109
  Receipt Date: 20130322
  Transmission Date: 20140127
  Serious: Yes (Death, Hospitalization, Other)
  Sender: FDA-Public Use
  Company Number: PHHY2013BR001854

PATIENT
  Age: 94 Year
  Sex: Female

DRUGS (2)
  1. DIOVAN [Suspect]
     Indication: BLOOD PRESSURE
     Dosage: 2 DF, (160 MG) DAILY
     Route: 048
  2. EXELON [Suspect]
     Indication: MEMORY IMPAIRMENT
     Dosage: 1 DF (1.5 MG) Q12H
     Route: 048

REACTIONS (5)
  - Pneumonia [Fatal]
  - Pleural effusion [Fatal]
  - Blood pressure fluctuation [Not Recovered/Not Resolved]
  - Cardiac disorder [Unknown]
  - Insomnia [Not Recovered/Not Resolved]
